FAERS Safety Report 5336508-4 (Version None)
Quarter: 2007Q2

REPORT INFORMATION
  Report Type: 
  Country: None (occurrence: None)
  Receive Date: 20070523
  Receipt Date: 20070515
  Transmission Date: 20071010
  Serious: Yes (Hospitalization)
  Sender: FDA-Public Use
  Company Number: 2007BI010609

PATIENT
  Age: 34 Year
  Sex: Female
  Weight: 75 kg

DRUGS (3)
  1. AVONEX [Suspect]
     Indication: MULTIPLE SCLEROSIS
  2. LEVOTHYROXINE SODIUM [Concomitant]
  3. UNKNOWN MEDICATION [Concomitant]

REACTIONS (5)
  - DEPRESSION [None]
  - FATIGUE [None]
  - INSOMNIA [None]
  - NEUROGENIC BLADDER [None]
  - UTERINE HAEMORRHAGE [None]
